FAERS Safety Report 8411786-3 (Version None)
Quarter: 2012Q2

REPORT INFORMATION
  Report Type: 
  Country: None (occurrence: None)
  Receive Date: 20120605
  Receipt Date: 20120525
  Transmission Date: 20120825
  Serious: Yes (Hospitalization)
  Sender: FDA-Public Use
  Company Number: FR-FRI-1000030916

PATIENT
  Sex: Male

DRUGS (4)
  1. ZOPICLONE [Concomitant]
     Route: 048
  2. OMEPRAZOLE [Concomitant]
     Indication: GASTRIC ULCER
     Route: 048
  3. ACAMPROSATE [Suspect]
     Dosage: 6 DF
     Route: 048
     Dates: start: 20110301, end: 20120301
  4. AMLODIPINE [Concomitant]
     Route: 048

REACTIONS (2)
  - ANGIODYSPLASIA [None]
  - ANAEMIA [None]
